FAERS Safety Report 12876313 (Version 1)
Quarter: 2016Q4

REPORT INFORMATION
  Report Type: Spontaneous
  Country: US (occurrence: US)
  Receive Date: 20161021
  Receipt Date: 20161021
  Transmission Date: 20170207
  Serious: No
  Sender: FDA-Public Use
  Company Number: None

PATIENT
  Age: 32 Year
  Sex: Male

DRUGS (1)
  1. XALKORI [Suspect]
     Active Substance: CRIZOTINIB
     Indication: LUNG NEOPLASM MALIGNANT

REACTIONS (5)
  - Visual impairment [None]
  - Cough [None]
  - Radiation pneumonitis [None]
  - Decreased appetite [None]
  - Chest pain [None]

NARRATIVE: CASE EVENT DATE: 20161021
